FAERS Safety Report 7065703-1 (Version None)
Quarter: 2010Q4

REPORT INFORMATION
  Report Type: 
  Country: None (occurrence: None)
  Receive Date: 20101027
  Receipt Date: 20101019
  Transmission Date: 20110411
  Serious: Yes (Hospitalization)
  Sender: FDA-Public Use
  Company Number: BR-ROCHE-735967

PATIENT
  Sex: Female

DRUGS (4)
  1. ISOTRETINOIN [Suspect]
     Indication: ACNE
     Route: 048
     Dates: start: 20100624, end: 20100901
  2. ISOTRETINOIN [Suspect]
     Dosage: DOSAGE INCREASED
     Route: 048
     Dates: start: 20100901, end: 20101001
  3. SELENE [Suspect]
     Indication: CONTRACEPTION
     Route: 065
  4. SIBUTRAMINE HYDROCHLORIDE MONOHYDRATE [Concomitant]

REACTIONS (1)
  - THROMBOSIS [None]
